FAERS Safety Report 7636575-9 (Version None)
Quarter: 2011Q3

REPORT INFORMATION
  Report Type: 
  Country: None (occurrence: None)
  Receive Date: 20110722
  Receipt Date: 20110722
  Transmission Date: 20111222
  Serious: Yes (Hospitalization)
  Sender: FDA-Public Use
  Company Number: None

PATIENT
  Sex: Female
  Weight: 73.9363 kg

DRUGS (2)
  1. ZOCOR [Suspect]
     Indication: BLOOD CHOLESTEROL INCREASED
     Dosage: SIMVASTATIN 10 MG 1 DAILY BEFORE BED
     Dates: start: 20100901, end: 20100910
  2. PAIN MEDICATION [Concomitant]

REACTIONS (6)
  - PAIN [None]
  - PAIN IN EXTREMITY [None]
  - BACK PAIN [None]
  - RASH [None]
  - HEPATIC ENZYME INCREASED [None]
  - BLOOD ALKALINE PHOSPHATASE INCREASED [None]
